FAERS Safety Report 11456266 (Version 4)
Quarter: 2015Q4

REPORT INFORMATION
  Report Type: Spontaneous
  Country: US (occurrence: None)
  Receive Date: 20150903
  Receipt Date: 20151102
  Transmission Date: 20160304
  Serious: Yes (Other)
  Sender: FDA-Public Use
  Company Number: ADR-2014-01730

PATIENT
  Age: 47 Year
  Sex: Female

DRUGS (2)
  1. LIORESAL [Suspect]
     Active Substance: BACLOFEN
     Indication: MUSCLE SPASTICITY
     Dosage: 148.98 MCG/DAY
  2. CLARITIN [Suspect]
     Active Substance: LORATADINE

REACTIONS (12)
  - Muscle spasticity [None]
  - Faecal incontinence [None]
  - Performance status decreased [None]
  - Seizure [None]
  - Adverse drug reaction [None]
  - Weight bearing difficulty [None]
  - Cerebral palsy [None]
  - Syncope [None]
  - Disease progression [None]
  - Movement disorder [None]
  - Hypotonia [None]
  - Paralysis [None]
